FAERS Safety Report 14726012 (Version 2)
Quarter: 2018Q2

REPORT INFORMATION
  Report Type: Report from Study
  Country: SI (occurrence: SI)
  Receive Date: 20180406
  Receipt Date: 20180411
  Transmission Date: 20180711
  Serious: Yes (Life-Threatening, Hospitalization, Other)
  Sender: FDA-Public Use
  Company Number: SI-ROCHE-2053858

PATIENT
  Age: 70 Year
  Sex: Female
  Weight: 73 kg

DRUGS (19)
  1. BEVACIZUMAB. [Suspect]
     Active Substance: BEVACIZUMAB
     Indication: COLORECTAL CANCER METASTATIC
     Dosage: DATE OF MOST RECENT DOSE OF BEVACIZUMAB (400 MG) PRIOR TO AE ONSET : 18/DEC/2017?15-30 MINUTE IV INF
     Route: 042
     Dates: start: 20171218
  2. NORADRENALIN [Concomitant]
     Active Substance: NOREPINEPHRINE\NOREPINEPHRINE BITARTRATE
     Indication: HYPOTENSION
     Dosage: 0.11 OTHER
     Route: 065
     Dates: start: 20180102, end: 201801
  3. NOVOMIX [Concomitant]
     Active Substance: INSULIN ASPART
     Indication: HYPOGLYCAEMIA
  4. PANTOPRAZOL [Concomitant]
     Active Substance: PANTOPRAZOLE SODIUM
     Indication: GASTRITIS
     Route: 065
     Dates: start: 201801
  5. TAZOCIN [Concomitant]
     Active Substance: PIPERACILLIN SODIUM\TAZOBACTAM SODIUM
     Indication: PNEUMONIA
     Route: 065
     Dates: start: 20180102, end: 20180112
  6. 5-FU [Suspect]
     Active Substance: FLUOROURACIL
     Indication: COLORECTAL CANCER METASTATIC
     Dosage: 1600-2400 MG/M2?EITHER 8 OR 6 TWO WEEK CYCLES (AS PER PROTOCOL) (MOST RECENT DOSE)
     Route: 042
     Dates: start: 20171218
  7. MAGNESOL (SLOVENIA) [Concomitant]
     Route: 065
     Dates: start: 20171220
  8. DOBUTAMINE [Concomitant]
     Active Substance: DOBUTAMINE\DOBUTAMINE HYDROCHLORIDE
     Indication: HYPOTENSION
     Route: 065
     Dates: start: 201709, end: 20171226
  9. REGLAN [Concomitant]
     Active Substance: METOCLOPRAMIDE HYDROCHLORIDE
     Indication: NAUSEA
     Route: 065
     Dates: start: 20171220
  10. EDEMID [Concomitant]
     Active Substance: FUROSEMIDE
     Route: 065
     Dates: start: 201801
  11. NOVOMIX [Concomitant]
     Active Substance: INSULIN ASPART
     Indication: DIABETES MELLITUS
     Dosage: 4 UNIT
     Route: 065
     Dates: start: 20180115
  12. OXALIPLATIN. [Suspect]
     Active Substance: OXALIPLATIN
     Indication: COLORECTAL CANCER METASTATIC
     Dosage: EITHER 8 OR 6 TWO WEEK CYCLES (AS PER PROTOCOL) (MOST RECENT DOSE)
     Route: 042
     Dates: start: 20171218
  13. LEKADOL [Concomitant]
     Active Substance: ACETAMINOPHEN
     Route: 065
     Dates: start: 20171221, end: 20171221
  14. NOVORAPID [Concomitant]
     Active Substance: INSULIN ASPART
     Indication: DIABETES MELLITUS
     Route: 065
     Dates: start: 20180115
  15. VOLUVEN (SLOVENIA) [Concomitant]
     Indication: HYPOTENSION
     Route: 065
     Dates: start: 20180102, end: 201801
  16. DOBUTAMINE [Concomitant]
     Active Substance: DOBUTAMINE\DOBUTAMINE HYDROCHLORIDE
     Route: 065
     Dates: start: 20180102, end: 201801
  17. HEPARIN [Concomitant]
     Active Substance: HEPARIN SODIUM
     Route: 065
     Dates: start: 20180102
  18. LEUCOVORIN. [Suspect]
     Active Substance: LEUCOVORIN
     Indication: COLORECTAL CANCER METASTATIC
     Dosage: EITHER 8 OR 6 TWO WEEK CYCLES (AS PER PROTOCOL) (MOST RECENT DOSE)
     Route: 042
     Dates: start: 20171218
  19. METFORMIN [Concomitant]
     Active Substance: METFORMIN HYDROCHLORIDE
     Indication: DIABETES MELLITUS
     Dosage: 2 TABLETS
     Route: 048
     Dates: start: 20171227, end: 20180102

REACTIONS (6)
  - Dehydration [Recovered/Resolved]
  - Lactic acidosis [Recovered/Resolved]
  - Hypoventilation [Recovered/Resolved]
  - Acute kidney injury [Recovered/Resolved]
  - Hypoglycaemia [Recovered/Resolved]
  - Somnolence [Recovered/Resolved]

NARRATIVE: CASE EVENT DATE: 20180101
